FAERS Safety Report 7204834-X (Version None)
Quarter: 2010Q4

REPORT INFORMATION
  Report Type: 
  Country: None (occurrence: None)
  Receive Date: 20101230
  Receipt Date: 20101227
  Transmission Date: 20110411
  Serious: Yes (Hospitalization, Other)
  Sender: FDA-Public Use
  Company Number: US-PFIZER INC-US-WYE-H08519409

PATIENT
  Sex: Female
  Weight: 73 kg

DRUGS (2)
  1. PREMARIN [Suspect]
     Indication: HORMONE REPLACEMENT THERAPY
     Dosage: 0.3 MG, UNK
     Dates: start: 20021101, end: 20040801
  2. PREMPRO [Suspect]
     Indication: HORMONE REPLACEMENT THERAPY
     Dosage: UNK
     Dates: start: 20021101, end: 20040801

REACTIONS (2)
  - MYOCARDIAL INFARCTION [None]
  - PULMONARY EMBOLISM [None]
